FAERS Safety Report 23377427 (Version 1)
Quarter: 2024Q1

REPORT INFORMATION
  Report Type: Spontaneous
  Country: US (occurrence: None)
  Receive Date: 20240104
  Receipt Date: 20240104
  Transmission Date: 20240410
  Serious: Yes (Life-Threatening, Hospitalization)
  Sender: FDA-Public Use
  Company Number: None

PATIENT
  Age: 72 Year
  Sex: Female
  Weight: 132.7 kg

DRUGS (3)
  1. DOBUTAMINE [Suspect]
     Active Substance: DOBUTAMINE HYDROCHLORIDE
     Indication: Cardiac failure chronic
     Dosage: 5 MCG/KG/MIN INTRAVENOUS DRIP ??OTHER FREQUENCY: CONTINUOUS INFUSION
     Route: 041
     Dates: start: 20231208, end: 20231210
  2. MILRINONE [Suspect]
     Active Substance: MILRINONE
     Indication: Chronic left ventricular failure
     Dosage: 0.25MCG/KG/MIN  INTRAVENOUS DRIP??OTHER FREQUENCY: CONTINUOUS INFUSION
     Route: 041
     Dates: start: 20231208, end: 20231210
  3. MILRINONE [Suspect]
     Active Substance: MILRINONE
     Indication: Chronic left ventricular failure

REACTIONS (3)
  - Wrong patient received product [None]
  - Wrong product administered [None]
  - Condition aggravated [None]

NARRATIVE: CASE EVENT DATE: 20231207
